FAERS Safety Report 25813010 (Version 1)
Quarter: 2025Q3

REPORT INFORMATION
  Report Type: Spontaneous
  Country: CN (occurrence: CN)
  Receive Date: 20250917
  Receipt Date: 20250917
  Transmission Date: 20251021
  Serious: Yes (Hospitalization)
  Sender: ORGANON
  Company Number: CN-ORGANON-O2509CHN001162

PATIENT
  Age: 24 Year
  Sex: Female
  Weight: 46 kg

DRUGS (6)
  1. SINGULAIR [Suspect]
     Active Substance: MONTELUKAST SODIUM
     Indication: Mood altered
     Dosage: 5 TABLETS, ONCE, ORALLY
     Route: 048
     Dates: start: 20250901, end: 20250901
  2. ACETAMINOPHEN\AMANTADINE HYDROCHLORIDE [Suspect]
     Active Substance: ACETAMINOPHEN\AMANTADINE HYDROCHLORIDE
     Indication: Mood altered
     Dosage: 5 CAPSULES, ONCE, ORALLY
     Route: 048
     Dates: start: 20250901, end: 20250901
  3. IBUPROFEN [Suspect]
     Active Substance: IBUPROFEN
     Indication: Mood altered
     Dosage: 12 CAPSULES, ONCE, ORALLY
     Route: 048
     Dates: start: 20250901, end: 20250901
  4. HERBALS [Suspect]
     Active Substance: HERBALS
     Indication: Mood altered
     Dosage: 8 CAPSULES, ONCE, ORALLY
     Route: 048
     Dates: start: 20250901, end: 20250901
  5. LORATADINE [Suspect]
     Active Substance: LORATADINE
     Indication: Mood altered
     Dosage: 14 TABLETS, ONCE, ORALLY
     Route: 048
     Dates: start: 20250901, end: 20250901
  6. CETIRIZINE HYDROCHLORIDE [Suspect]
     Active Substance: CETIRIZINE HYDROCHLORIDE
     Indication: Mood altered
     Dosage: 6 TABLETS, ONCE, ORALLY
     Route: 048
     Dates: start: 20250901, end: 20250901

REACTIONS (8)
  - Dizziness [Recovering/Resolving]
  - Headache [Recovering/Resolving]
  - Chest discomfort [Recovering/Resolving]
  - Tachypnoea [Recovering/Resolving]
  - Abdominal pain upper [Recovering/Resolving]
  - Nausea [Recovering/Resolving]
  - Product use in unapproved indication [Unknown]
  - Intentional overdose [Unknown]

NARRATIVE: CASE EVENT DATE: 20250901
